FAERS Safety Report 6542358-3 (Version None)
Quarter: 2010Q1

REPORT INFORMATION
  Report Type: 
  Country: None (occurrence: None)
  Receive Date: 20100114
  Receipt Date: 20100114
  Transmission Date: 20100710
  Serious: Yes (Hospitalization, Other)
  Sender: FDA-Public Use
  Company Number: None

PATIENT
  Sex: Female
  Weight: 46.7205 kg

DRUGS (4)
  1. ORENCIA [Suspect]
     Indication: RHEUMATOID ARTHRITIS
     Dosage: 500 MG Q 4 WEEKS IV
     Route: 042
     Dates: start: 20090209, end: 20091112
  2. METHOTREXATE [Suspect]
     Indication: RHEUMATOID ARTHRITIS
     Dosage: 12.5 MG Q WEEKS PO
     Route: 048
     Dates: start: 20040401, end: 20091210
  3. PLAQUENIL [Concomitant]
  4. NAPROSYN [Concomitant]

REACTIONS (4)
  - HODGKIN'S DISEASE [None]
  - LIVER FUNCTION TEST ABNORMAL [None]
  - PANCYTOPENIA [None]
  - PYREXIA [None]
